FAERS Safety Report 4410593-6 (Version None)
Quarter: 2004Q3

REPORT INFORMATION
  Report Type: 
  Country: None (occurrence: None)
  Receive Date: 20040728
  Receipt Date: 20040728
  Transmission Date: 20050211
  Serious: Yes (Hospitalization)
  Sender: FDA-Public Use
  Company Number: None

PATIENT
  Age: 21 Year
  Sex: Female
  Weight: 52.2 kg

DRUGS (5)
  1. LAMICTAL [Suspect]
     Indication: ANXIETY
  2. LAMICTAL [Suspect]
     Indication: DEPRESSION
  3. EFFEXOR [Suspect]
     Indication: ANXIETY
     Dosage: 50 MG PO TID
     Route: 048
  4. EFFEXOR [Suspect]
     Indication: DEPRESSION
     Dosage: 50 MG PO TID
     Route: 048
  5. LEXAPRO [Concomitant]

REACTIONS (3)
  - LIVER FUNCTION TEST ABNORMAL [None]
  - NAUSEA [None]
  - STEVENS-JOHNSON SYNDROME [None]
